FAERS Safety Report 15275266 (Version 1)
Quarter: 2018Q3

REPORT INFORMATION
  Report Type: Spontaneous
  Country: US (occurrence: US)
  Receive Date: 20180727
  Receipt Date: 20180727
  Transmission Date: 20181010
  Serious: Yes (Death, Other)
  Sender: FDA-Public Use
  Company Number: None

PATIENT
  Age: 61 Year

DRUGS (1)
  1. MYCOPHENOLIC ACID 360MG APOTEX [Suspect]
     Active Substance: MYCOPHENOLATE SODIUM
     Indication: JUVENILE PSORIATIC ARTHRITIS
     Dosage: 360MG X2 = 720MG
     Route: 048
     Dates: start: 20170228, end: 20180702

REACTIONS (1)
  - Death [None]

NARRATIVE: CASE EVENT DATE: 20180702
